FAERS Safety Report 10690855 (Version 2)
Quarter: 2015Q1

REPORT INFORMATION
  Report Type: Spontaneous
  Country: IT (occurrence: IT)
  Receive Date: 20150105
  Receipt Date: 20150119
  Transmission Date: 20150720
  Serious: Yes (Death)
  Sender: FDA-Public Use
  Company Number: IT-SA-2014SA180275

PATIENT
  Age: 48 Year
  Sex: Female
  Weight: 100 kg

DRUGS (4)
  1. ADRIBLASTINA [Suspect]
     Active Substance: DOXORUBICIN HYDROCHLORIDE
     Indication: CHEMOTHERAPY
     Route: 041
     Dates: start: 20050516, end: 20050516
  2. TAXOTERE [Suspect]
     Active Substance: DOCETAXEL
     Indication: CHEMOTHERAPY
     Dosage: DOSE:3 UNIT(S)
     Route: 041
     Dates: start: 20050516, end: 20050516
  3. TAXOTERE [Suspect]
     Active Substance: DOCETAXEL
     Indication: CHEMOTHERAPY
     Dosage: DOSE:1 UNIT(S)
     Route: 041
     Dates: start: 20050516, end: 20050516
  4. ENDOXAN [Suspect]
     Active Substance: CYCLOPHOSPHAMIDE
     Indication: CHEMOTHERAPY
     Route: 041
     Dates: start: 20050516, end: 20050516

REACTIONS (3)
  - Congestive cardiomyopathy [Fatal]
  - Cardiotoxicity [Fatal]
  - Toxicity to various agents [Fatal]

NARRATIVE: CASE EVENT DATE: 20050701
